FAERS Safety Report 21674822 (Version 1)
Quarter: 2022Q4

REPORT INFORMATION
  Report Type: Spontaneous
  Country: US (occurrence: None)
  Receive Date: 20221201
  Receipt Date: 20221201
  Transmission Date: 20230113
  Serious: No
  Sender: FDA-Public Use
  Company Number: None

PATIENT
  Age: 68 Year
  Sex: Female
  Weight: 102.51 kg

DRUGS (17)
  1. LENALIDOMIDE [Suspect]
     Active Substance: LENALIDOMIDE
     Indication: Plasma cell myeloma
     Dosage: FREQUENCY : DAILY;?
     Route: 048
  2. ACYCLOVIR [Concomitant]
  3. ASPIRIN [Concomitant]
     Active Substance: ASPIRIN
  4. CELEXA [Concomitant]
  5. DEXAMETHASONE [Concomitant]
  6. FAMOTIDINE [Concomitant]
  7. KETOROLAC EYE DROPS [Concomitant]
  8. LOSARTAN POTASSIUM-HCTZ [Concomitant]
  9. MAGNESIUM OXIDE [Concomitant]
  10. MULTIVITAMIN [Concomitant]
  11. OFLOXACIN [Concomitant]
     Active Substance: OFLOXACIN
  12. ONDANSETRON HCI [Concomitant]
  13. PREDNISONE [Concomitant]
     Active Substance: PREDNISONE
  14. PROCHLORPERAZINE MALEATE [Concomitant]
  15. QUESTRAN [Concomitant]
  16. TOVIAZ VELCADE [Concomitant]
  17. VITAMIN D3 [Concomitant]

REACTIONS (1)
  - COVID-19 [None]
